FAERS Safety Report 12578903 (Version 1)
Quarter: 2016Q3

REPORT INFORMATION
  Report Type: Spontaneous
  Country: US (occurrence: US)
  Receive Date: 20160721
  Receipt Date: 20160721
  Transmission Date: 20161109
  Serious: No
  Sender: FDA-Public Use
  Company Number: US-BEH-2016070963

PATIENT
  Age: 8 Year
  Sex: Male
  Weight: 25.85 kg

DRUGS (19)
  1. GAMMAGARD [Concomitant]
     Active Substance: HUMAN IMMUNOGLOBULIN G
  2. SINGULAIR [Concomitant]
     Active Substance: MONTELUKAST SODIUM
  3. INTUNIV [Concomitant]
     Active Substance: GUANFACINE HYDROCHLORIDE
  4. PATANOL [Concomitant]
     Active Substance: OLOPATADINE HYDROCHLORIDE
  5. HIZENTRA [Suspect]
     Active Substance: HUMAN IMMUNOGLOBULIN G
     Indication: IMMUNODEFICIENCY COMMON VARIABLE
     Dosage: UNK
     Route: 058
  6. HIZENTRA [Suspect]
     Active Substance: HUMAN IMMUNOGLOBULIN G
     Dosage: UNK
     Route: 058
  7. AZITHROMYCIN ANHYDROUS. [Concomitant]
     Active Substance: AZITHROMYCIN ANHYDROUS
  8. GUAIFENESIN. [Concomitant]
     Active Substance: GUAIFENESIN
  9. LIDOCAINE/PRILOCAINE [Concomitant]
     Active Substance: LIDOCAINE\PRILOCAINE
  10. ELIDEL [Concomitant]
     Active Substance: PIMECROLIMUS
  11. TRIAMCINOLONE [Concomitant]
     Active Substance: TRIAMCINOLONE
  12. HIZENTRA [Suspect]
     Active Substance: HUMAN IMMUNOGLOBULIN G
     Dosage: 7 G, QW
     Route: 058
     Dates: start: 20160628
  13. IBUPROFEN. [Concomitant]
     Active Substance: IBUPROFEN
  14. QNASL [Concomitant]
     Active Substance: BECLOMETHASONE DIPROPIONATE
  15. PULMICORT TURBUHALER [Concomitant]
     Active Substance: BUDESONIDE
  16. BENADRYL ALLERGY [Concomitant]
     Active Substance: DIPHENHYDRAMINE HYDROCHLORIDE
  17. DIPHENHYDRAMINE. [Concomitant]
     Active Substance: DIPHENHYDRAMINE
  18. ACETAMINOPHEN. [Concomitant]
     Active Substance: ACETAMINOPHEN
  19. EPIPEN JR [Concomitant]
     Active Substance: EPINEPHRINE

REACTIONS (4)
  - Injection site erythema [Unknown]
  - Injection site urticaria [Recovered/Resolved]
  - Pruritus generalised [Unknown]
  - Injection site swelling [Unknown]
